FAERS Safety Report 7034025-7 (Version None)
Quarter: 2010Q4

REPORT INFORMATION
  Report Type: 
  Country: None (occurrence: None)
  Receive Date: 20101006
  Receipt Date: 20100928
  Transmission Date: 20110411
  Serious: Yes (Other)
  Sender: FDA-Public Use
  Company Number: 667916

PATIENT
  Age: 51 Year
  Sex: Female
  Weight: 75 kg

DRUGS (6)
  1. PACLITAXEL [Suspect]
     Indication: BREAST CANCER RECURRENT
     Dosage: 162 MG MILLIGRAM(S), 1 WEEK, INTRAVENOUS
     Route: 042
     Dates: start: 20100609, end: 20100728
  2. CIPROFLOXACIN [Concomitant]
  3. (CLEXANE) [Concomitant]
  4. CHLORPHENIRAMINE MALEATE [Concomitant]
  5. (DEXAMETHASONE) [Concomitant]
  6. RANITIDINE [Concomitant]

REACTIONS (3)
  - FLUSHING [None]
  - HYPERTENSION [None]
  - LOSS OF CONSCIOUSNESS [None]
